FAERS Safety Report 25168033 (Version 2)
Quarter: 2025Q2

REPORT INFORMATION
  Report Type: Spontaneous
  Country: FR (occurrence: FR)
  Receive Date: 20250407
  Receipt Date: 20250416
  Transmission Date: 20250717
  Serious: Yes (Hospitalization, Other)
  Sender: Haleon PLC
  Company Number: FR-ORG100013279-032562

PATIENT
  Age: 48 Year
  Sex: Male
  Weight: 95 kg

DRUGS (2)
  1. NICORETTE [Suspect]
     Active Substance: NICOTINE
     Indication: Ex-tobacco user
     Route: 048
     Dates: end: 20211217
  2. ECONAZOLE NITRATE [Suspect]
     Active Substance: ECONAZOLE NITRATE
     Indication: Fungal infection
     Route: 061

REACTIONS (1)
  - Reversible cerebral vasoconstriction syndrome [Recovered/Resolved]

NARRATIVE: CASE EVENT DATE: 20211209
